FAERS Safety Report 20595002 (Version 1)
Quarter: 2022Q1

REPORT INFORMATION
  Report Type: Report from Study
  Country: US (occurrence: US)
  Receive Date: 20220315
  Receipt Date: 20220315
  Transmission Date: 20220423
  Serious: Yes (Other)
  Sender: FDA-Public Use
  Company Number: US-UCBSA-2021061761

PATIENT
  Age: 69 Year
  Sex: Female
  Weight: 147 kg

DRUGS (6)
  1. ROTIGOTINE [Suspect]
     Active Substance: ROTIGOTINE
     Indication: Parkinsonism
     Dosage: 2MG PATCH DAILY
     Route: 062
  2. ROTIGOTINE [Suspect]
     Active Substance: ROTIGOTINE
     Indication: Restless legs syndrome
  3. VIMPAT [Suspect]
     Active Substance: LACOSAMIDE
     Indication: Seizure
     Dosage: 100MG AM AND 125MG PM
  4. VIMPAT [Suspect]
     Active Substance: LACOSAMIDE
     Dosage: 50 MILLIGRAM, 6X/DAY
  5. VIMPAT [Suspect]
     Active Substance: LACOSAMIDE
     Dosage: 200MG MORNING AND 125 MG EVENING, 2X/DAY (BID)
  6. VIMPAT [Suspect]
     Active Substance: LACOSAMIDE
     Dosage: 25MG OF 50MG TABLET

REACTIONS (7)
  - Generalised tonic-clonic seizure [Unknown]
  - Pharyngeal swelling [Recovered/Resolved]
  - Throat irritation [Recovered/Resolved]
  - Headache [Recovered/Resolved]
  - Product use issue [Unknown]
  - Product adhesion issue [Unknown]
  - Wrong technique in product usage process [Unknown]

NARRATIVE: CASE EVENT DATE: 20211201
